FAERS Safety Report 10096708 (Version 1)
Quarter: 2014Q2

REPORT INFORMATION
  Report Type: Spontaneous
  Country: US (occurrence: None)
  Receive Date: 20140421
  Receipt Date: 20140421
  Transmission Date: 20141212
  Serious: Yes (Life-Threatening, Hospitalization, Disabling, Other)
  Sender: FDA-Public Use
  Company Number: None

PATIENT
  Age: 62 Year
  Sex: Male
  Weight: 88.45 kg

DRUGS (1)
  1. ANDROGEL [Suspect]
     Indication: METABOLIC SYNDROME
     Route: 061
     Dates: start: 201203, end: 201208

REACTIONS (4)
  - Myocardial infarction [None]
  - Deep vein thrombosis [None]
  - Cardiovascular disorder [None]
  - Insomnia [None]
